FAERS Safety Report 5202248-5 (Version None)
Quarter: 2007Q1

REPORT INFORMATION
  Report Type: 
  Country: None (occurrence: None)
  Receive Date: 20070109
  Receipt Date: 20070103
  Transmission Date: 20070707
  Serious: Yes (Other)
  Sender: FDA-Public Use
  Company Number: US-GLAXOSMITHKLINE-A0627464A

PATIENT
  Sex: Female

DRUGS (7)
  1. COREG [Suspect]
     Indication: CARDIOMYOPATHY
     Route: 048
  2. LASIX [Suspect]
  3. IRON SUPPLEMENT [Concomitant]
  4. COUMADIN [Concomitant]
  5. ALDACTONE [Concomitant]
  6. ALTACE [Concomitant]
  7. HYDROCHLOROTHIAZIDE [Concomitant]

REACTIONS (5)
  - ANAEMIA [None]
  - DRUG INTERACTION [None]
  - FLUID RETENTION [None]
  - WEIGHT INCREASED [None]
  - WEIGHT LOSS POOR [None]
